FAERS Safety Report 6645666-0 (Version None)
Quarter: 2010Q1

REPORT INFORMATION
  Report Type: 
  Country: None (occurrence: None)
  Receive Date: 20100323
  Receipt Date: 20100309
  Transmission Date: 20100710
  Serious: Yes (Hospitalization)
  Sender: FDA-Public Use
  Company Number: US-ELI_LILLY_AND_COMPANY-US201001004415

PATIENT
  Sex: Female

DRUGS (17)
  1. FORTEO [Suspect]
     Indication: OSTEOPOROSIS
     Dosage: 20 UG, DAILY (1/D)
     Dates: start: 20090401, end: 20091201
  2. FORTEO [Suspect]
     Dosage: 20 UG, DAILY (1/D)
     Dates: start: 20090401, end: 20091201
  3. FORTEO [Suspect]
     Dosage: 20 UG, DAILY (1/D)
     Dates: start: 20090401, end: 20091201
  4. MIRALAX [Concomitant]
  5. ENTOCORT EC [Concomitant]
  6. METOPROLOL TARTRATE [Concomitant]
  7. CALCIUM W/VITAMIN D NOS [Concomitant]
  8. CENTRUM [Concomitant]
  9. VITAMIN C [Concomitant]
  10. METAMUCIL-2 [Concomitant]
  11. TYLENOL                                 /SCH/ [Concomitant]
  12. LACTAID [Concomitant]
  13. ZYRTEC [Concomitant]
  14. CLARITIN-D [Concomitant]
  15. HYZAAR [Concomitant]
  16. GAS X [Concomitant]
  17. SCALPICIN [Concomitant]

REACTIONS (7)
  - ASTHENIA [None]
  - CONFUSIONAL STATE [None]
  - DEHYDRATION [None]
  - DIZZINESS [None]
  - ELECTROLYTE IMBALANCE [None]
  - HYPERCALCAEMIA [None]
  - NAUSEA [None]
